FAERS Safety Report 5220109-2 (Version None)
Quarter: 2006Q4

REPORT INFORMATION
  Report Type: 
  Country: None (occurrence: None)
  Receive Date: 20061121
  Receipt Date: 20060805
  Transmission Date: 20070319
  Serious: No
  Sender: FDA-Public Use
  Company Number: TPA2006A01280

PATIENT
  Sex: Male

DRUGS (1)
  1. ROZEREM [Suspect]
     Indication: DRUG USE FOR UNKNOWN INDICATION
     Dosage: UNK., UNKNOWN, PER ORAL
     Route: 048

REACTIONS (2)
  - FATIGUE [None]
  - INITIAL INSOMNIA [None]
